FAERS Safety Report 24263554 (Version 2)
Quarter: 2025Q4

REPORT INFORMATION
  Report Type: Spontaneous
  Country: US (occurrence: US)
  Receive Date: 20240829
  Receipt Date: 20251215
  Transmission Date: 20260118
  Serious: Yes (Hospitalization, Other)
  Sender: VERTEX
  Company Number: US-VERTEX PHARMACEUTICALS-2024-013520

PATIENT
  Sex: Female

DRUGS (1)
  1. TRIKAFTA [Suspect]
     Active Substance: ELEXACAFTOR\IVACAFTOR\TEZACAFTOR
     Indication: Cystic fibrosis
     Dosage: FULL DOSE
     Route: 061

REACTIONS (7)
  - Suicidal ideation [Unknown]
  - Suicide attempt [Recovered/Resolved]
  - Pain [Unknown]
  - Cognitive disorder [Unknown]
  - Depression [Unknown]
  - Fibromyalgia [Unknown]
  - Brain fog [Unknown]
